FAERS Safety Report 6676862-4 (Version None)
Quarter: 2010Q2

REPORT INFORMATION
  Report Type: 
  Country: None (occurrence: None)
  Receive Date: 20100409
  Receipt Date: 20100409
  Transmission Date: 20101027
  Serious: Yes (Other)
  Sender: FDA-Public Use
  Company Number: None

PATIENT
  Sex: Female
  Weight: 39.9165 kg

DRUGS (2)
  1. MIRTAZAPINE [Suspect]
     Indication: ANXIETY
     Dosage: START 15 MG/DAY ORAL
     Route: 048
     Dates: start: 20100301
  2. MIRTAZAPINE [Suspect]
     Indication: DEPRESSION
     Dosage: TO 22.5 MG DAY

REACTIONS (3)
  - AGITATION [None]
  - INSOMNIA [None]
  - RESTLESS LEGS SYNDROME [None]
